FAERS Safety Report 10935465 (Version 1)
Quarter: 2015Q1

REPORT INFORMATION
  Report Type: Spontaneous
  Country: US (occurrence: US)
  Receive Date: 20150320
  Receipt Date: 20150320
  Transmission Date: 20150721
  Serious: Yes (Other)
  Sender: FDA-Public Use
  Company Number: US-GLAXOSMITHKLINE-US2015GSK034226

PATIENT
  Age: 59 Year
  Sex: Female

DRUGS (1)
  1. MELPHALAN [Suspect]
     Active Substance: MELPHALAN
     Indication: AUTOLOGOUS BONE MARROW TRANSPLANTATION THERAPY
     Dosage: 200 MG/M2, UNK

REACTIONS (13)
  - Alpha tumour necrosis factor increased [Recovered/Resolved]
  - Cytokine storm [Unknown]
  - Metabolic encephalopathy [Unknown]
  - Abdominal pain [Unknown]
  - Coma [Recovering/Resolving]
  - Nausea [Unknown]
  - Lethargy [Unknown]
  - Somnolence [Recovering/Resolving]
  - Gastrointestinal toxicity [Unknown]
  - Encephalopathy [Unknown]
  - Vomiting [Unknown]
  - Diarrhoea [Unknown]
  - Mucosal inflammation [Unknown]
